FAERS Safety Report 10563585 (Version 1)
Quarter: 2014Q4

REPORT INFORMATION
  Report Type: Report from Study
  Country: TW (occurrence: TW)
  Receive Date: 20141104
  Receipt Date: 20141104
  Transmission Date: 20150529
  Serious: Yes (Hospitalization)
  Sender: FDA-Public Use
  Company Number: TW-SA-2014SA146744

PATIENT
  Age: 74 Year
  Sex: Male

DRUGS (4)
  1. PLAVIX [Suspect]
     Active Substance: CLOPIDOGREL BISULFATE
     Indication: ACUTE CORONARY SYNDROME
     Route: 048
     Dates: start: 20140609
  2. CURAM [Concomitant]
     Active Substance: AMOXICILLIN\CLAVULANATE POTASSIUM
     Indication: OSTEOMYELITIS
  3. PLETAAL [Concomitant]
     Active Substance: CILOSTAZOL
  4. INSULATARD HM [Concomitant]
     Indication: DIABETES MELLITUS
     Dosage: DOSE:24 UNIT(S)

REACTIONS (3)
  - Osteomyelitis [Recovered/Resolved]
  - Ulcer [Recovered/Resolved]
  - Cellulitis [Recovered/Resolved]

NARRATIVE: CASE EVENT DATE: 20140905
